FAERS Safety Report 6315752-3 (Version None)
Quarter: 2009Q3

REPORT INFORMATION
  Report Type: 
  Country: None (occurrence: None)
  Receive Date: 20090819
  Receipt Date: 20090527
  Transmission Date: 20100115
  Serious: No
  Sender: FDA-Public Use
  Company Number: US-BAUSCH-2009BL002594

PATIENT
  Age: 44 Year
  Sex: Female
  Weight: 61 kg

DRUGS (8)
  1. CROMOLYN SODIUM [Suspect]
     Indication: SEASONAL ALLERGY
     Route: 045
     Dates: start: 20090526, end: 20090528
  2. LORAZEPAM [Concomitant]
     Indication: ANXIETY
     Route: 048
     Dates: start: 20080101
  3. METAGENICS [Concomitant]
     Indication: VITAMIN SUPPLEMENTATION
  4. VITAMIN B COMPLEX CAP [Concomitant]
  5. SUDAFED S.A. [Concomitant]
  6. METHYLSULFONYLMETHANE [Concomitant]
  7. VITAMIN D [Concomitant]
  8. ASCORBIC ACID [Concomitant]

REACTIONS (1)
  - ABDOMINAL PAIN UPPER [None]
